FAERS Safety Report 25181654 (Version 2)
Quarter: 2025Q2

REPORT INFORMATION
  Report Type: Spontaneous
  Country: HU (occurrence: HU)
  Receive Date: 20250410
  Receipt Date: 20250422
  Transmission Date: 20250716
  Serious: Yes (Death, Other)
  Sender: CATALYST PHARMA
  Company Number: HU-CATALYSTPHARMACEUTICALPARTNERS-HU-CATA-25-00514

PATIENT
  Age: 10 Year
  Sex: Female

DRUGS (2)
  1. FYCOMPA [Suspect]
     Active Substance: PERAMPANEL
     Indication: Partial seizures
     Dosage: 4 MG/DAY
     Route: 048
     Dates: start: 202410
  2. TEGRETOL [Concomitant]
     Active Substance: CARBAMAZEPINE
     Indication: Partial seizures
     Dosage: 300.0 MILLIGRAM(S) (300 MILLIGRAM(S), 1 IN 1 DAY)
     Route: 048

REACTIONS (5)
  - Cardio-respiratory arrest [Fatal]
  - Metabolic acidosis [Unknown]
  - Sudden unexplained death in epilepsy [Fatal]
  - Blood lactic acid increased [Unknown]
  - Blood glucose increased [Unknown]

NARRATIVE: CASE EVENT DATE: 20250123
